FAERS Safety Report 18734472 (Version 1)
Quarter: 2021Q1

REPORT INFORMATION
  Report Type: Spontaneous
  Country: US (occurrence: US)
  Receive Date: 20210112
  Receipt Date: 20210112
  Transmission Date: 20210419
  Serious: Yes (Hospitalization)
  Sender: FDA-Public Use
  Company Number: None

PATIENT
  Age: 47 Year
  Sex: Female

DRUGS (19)
  1. GEMFIBROZIL. [Concomitant]
     Active Substance: GEMFIBROZIL
  2. XARELTO [Concomitant]
     Active Substance: RIVAROXABAN
  3. PROAIR HFA [Concomitant]
     Active Substance: ALBUTEROL SULFATE
  4. VITAMIN D [Concomitant]
     Active Substance: VITAMIN D NOS
  5. METOPROLOL. [Concomitant]
     Active Substance: METOPROLOL
  6. DIAZEPAM. [Concomitant]
     Active Substance: DIAZEPAM
  7. ATORVASTATIN [Concomitant]
     Active Substance: ATORVASTATIN
  8. LOSARTAN. [Concomitant]
     Active Substance: LOSARTAN
  9. CLONAZEPAM. [Concomitant]
     Active Substance: CLONAZEPAM
  10. HYDROCO/APAP [Concomitant]
     Active Substance: ACETAMINOPHEN\HYDROCODONE
  11. HUMIRA [Suspect]
     Active Substance: ADALIMUMAB
     Indication: RHEUMATOID ARTHRITIS
     Dosage: ?          OTHER FREQUENCY:ONCE Q 14 DAYS;?
     Route: 058
     Dates: start: 20160201
  12. SYMBICORT [Concomitant]
     Active Substance: BUDESONIDE\FORMOTEROL FUMARATE DIHYDRATE
  13. GABAPENTIN. [Concomitant]
     Active Substance: GABAPENTIN
  14. PRENISONE [Concomitant]
     Active Substance: PREDNISONE
  15. VIMPAT [Concomitant]
     Active Substance: LACOSAMIDE
  16. ZONISAMIDE. [Concomitant]
     Active Substance: ZONISAMIDE
  17. AMITRIPTYLIN [Concomitant]
     Active Substance: AMITRIPTYLINE
  18. GLIMEPIRIDE. [Concomitant]
     Active Substance: GLIMEPIRIDE
  19. METHOTREXATE. [Concomitant]
     Active Substance: METHOTREXATE

REACTIONS (1)
  - Pulmonary embolism [None]

NARRATIVE: CASE EVENT DATE: 20180901
